FAERS Safety Report 8779505 (Version 2)
Quarter: 2013Q1

REPORT INFORMATION
  Report Type: Spontaneous
  Country: US (occurrence: US)
  Receive Date: 20120917
  Receipt Date: 20130308
  Transmission Date: 20140127
  Serious: Yes (Other)
  Sender: FDA-Public Use
  Company Number: US-ASTRAZENECA-2012SE70431

PATIENT
  Age: 71 Year
  Sex: Female
  Weight: 70.8 kg

DRUGS (13)
  1. NEXIUM [Suspect]
     Indication: GASTROOESOPHAGEAL REFLUX DISEASE
     Route: 048
     Dates: start: 2003
  2. NEXIUM [Suspect]
     Indication: GASTROOESOPHAGEAL REFLUX DISEASE
     Route: 048
     Dates: start: 20120901
  3. OMEPRAZOLE [Suspect]
     Indication: GASTROOESOPHAGEAL REFLUX DISEASE
     Route: 048
     Dates: start: 20120901
  4. BUDESONIDE [Suspect]
     Dosage: 0.5ML/2ML TWICE A DAY
     Route: 055
  5. PANTOPRAZOLE [Concomitant]
     Indication: GASTROOESOPHAGEAL REFLUX DISEASE
     Route: 048
     Dates: start: 2010
  6. PRAVASTATIN [Concomitant]
     Indication: BLOOD CHOLESTEROL ABNORMAL
     Route: 048
  7. AMLODIPINE BESYLATE [Concomitant]
     Indication: BLOOD PRESSURE ABNORMAL
     Route: 048
  8. EPLERENONE [Concomitant]
     Indication: BLOOD PRESSURE ABNORMAL
     Route: 048
  9. LEVOCETRIZINE HCL [Concomitant]
     Indication: MULTIPLE ALLERGIES
     Route: 048
  10. SPIRIVA [Concomitant]
     Indication: EMPHYSEMA
     Dosage: 1 PUFF DAILY
     Route: 055
  11. FORADIL [Concomitant]
     Indication: EMPHYSEMA
     Dosage: 1 PUFF TWO TIMES A DAY
     Route: 055
  12. ALBUTEROL [Concomitant]
     Indication: EMPHYSEMA
     Dosage: 2.5MG/2ML TWO TO FOUR TIMES A DAY
     Route: 055
  13. PREDNISONE [Concomitant]
     Indication: EMPHYSEMA
     Dosage: AS REQUIRED
     Route: 048

REACTIONS (8)
  - Neoplasm malignant [Unknown]
  - Lung neoplasm malignant [Unknown]
  - Gastrooesophageal reflux disease [Recovering/Resolving]
  - Emphysema [Unknown]
  - Condition aggravated [Unknown]
  - Off label use [Unknown]
  - Intentional drug misuse [Unknown]
  - Drug ineffective [Unknown]
